FAERS Safety Report 23150988 (Version 2)
Quarter: 2023Q4

REPORT INFORMATION
  Report Type: Report from Study
  Country: DE (occurrence: DE)
  Receive Date: 20231106
  Receipt Date: 20231113
  Transmission Date: 20240109
  Serious: Yes (Other)
  Sender: FDA-Public Use
  Company Number: DE-JNJFOC-20231076469

PATIENT
  Age: 65 Year
  Sex: Male

DRUGS (1)
  1. IBRUTINIB [Suspect]
     Active Substance: IBRUTINIB
     Indication: Chronic lymphocytic leukaemia
     Route: 048
     Dates: start: 20230818

REACTIONS (8)
  - Sudden hearing loss [Unknown]
  - Headache [Unknown]
  - Arthritis [Recovered/Resolved]
  - Bone pain [Recovered/Resolved]
  - Diarrhoea [Recovering/Resolving]
  - Arthritis [Recovered/Resolved]
  - Constipation [Unknown]
  - Muscle spasms [Recovering/Resolving]

NARRATIVE: CASE EVENT DATE: 20230828
